FAERS Safety Report 4640198-3 (Version None)
Quarter: 2005Q2

REPORT INFORMATION
  Report Type: 
  Country: None (occurrence: None)
  Receive Date: 20050419
  Receipt Date: 20050419
  Transmission Date: 20051028
  Serious: No
  Sender: FDA-Public Use
  Company Number: None

PATIENT
  Sex: Male

DRUGS (1)
  1. OXYCONTIN [Suspect]
     Indication: URINARY RETENTION
     Dosage: ONE PO Q 12 HRS     USED FOR 1-2 WEEKS
     Route: 048

REACTIONS (1)
  - URINARY RETENTION [None]
